FAERS Safety Report 26215823 (Version 1)
Quarter: 2025Q4

REPORT INFORMATION
  Report Type: Spontaneous
  Country: EU (occurrence: EU)
  Receive Date: 20251231
  Receipt Date: 20251231
  Transmission Date: 20260117
  Serious: Yes (Hospitalization, Other)
  Sender: POINTVIEW HOLDINGS LLC
  Company Number: EU-Pointview-000014

PATIENT
  Age: 78 Year
  Sex: Female

DRUGS (1)
  1. PREDNISONE [Suspect]
     Active Substance: PREDNISONE
     Indication: Polyarthritis
     Dosage: 2.5 TO 5 MG/DAY
     Route: 065

REACTIONS (3)
  - Infective tenosynovitis [Recovered/Resolved]
  - Atypical mycobacterial infection [Recovered/Resolved]
  - Immunosuppression [Recovered/Resolved]
